FAERS Safety Report 8427425-1 (Version None)
Quarter: 2012Q2

REPORT INFORMATION
  Report Type: 
  Country: None (occurrence: None)
  Receive Date: 20120611
  Receipt Date: 20120531
  Transmission Date: 20120825
  Serious: Yes (Death)
  Sender: FDA-Public Use
  Company Number: JP-BRISTOL-MYERS SQUIBB COMPANY-16665952

PATIENT
  Age: 41 Year
  Sex: Female

DRUGS (8)
  1. ABILIFY [Suspect]
     Indication: SCHIZOPHRENIA
     Route: 048
     Dates: start: 20100508, end: 20100515
  2. PANTOSIN [Concomitant]
     Dosage: TABS
     Dates: end: 20100515
  3. TASMOLIN [Concomitant]
     Dosage: TABS
     Dates: end: 20100515
  4. MAGNESIUM OXIDE [Concomitant]
     Dosage: TABS
     Dates: end: 20100515
  5. ROHYPNOL [Concomitant]
     Dosage: TABS
     Dates: end: 20100515
  6. RISPERDAL [Concomitant]
     Dosage: TABS
     Dates: end: 20100515
  7. DEPAS [Concomitant]
     Dosage: TABS
  8. LEVOTOMIN [Concomitant]
     Dosage: TABS
     Dates: end: 20100515

REACTIONS (1)
  - DEATH [None]
